FAERS Safety Report 13847864 (Version 1)
Quarter: 2017Q3

REPORT INFORMATION
  Report Type: Spontaneous
  Country: US (occurrence: US)
  Receive Date: 20170808
  Receipt Date: 20170808
  Transmission Date: 20171127
  Serious: Yes (Hospitalization)
  Sender: FDA-Public Use
  Company Number: None

PATIENT
  Age: 75 Year
  Sex: Female
  Weight: 121 kg

DRUGS (2)
  1. CYTARABINE PFIZER [Suspect]
     Active Substance: CYTARABINE
     Indication: METASTASES TO MENINGES
     Dosage: ?          OTHER FREQUENCY:ONCE;?
     Route: 037
     Dates: start: 20170731, end: 20170731
  2. CYTARABINE PFIZER [Suspect]
     Active Substance: CYTARABINE
     Indication: ANAPLASTIC LARGE-CELL LYMPHOMA
     Dosage: ?          OTHER FREQUENCY:ONCE;?
     Route: 037
     Dates: start: 20170731, end: 20170731

REACTIONS (2)
  - Accidental overdose [None]
  - Product label confusion [None]

NARRATIVE: CASE EVENT DATE: 20170731
